FAERS Safety Report 7210839-5 (Version None)
Quarter: 2011Q1

REPORT INFORMATION
  Report Type: 
  Country: None (occurrence: None)
  Receive Date: 20110105
  Receipt Date: 20101227
  Transmission Date: 20110831
  Serious: Yes (Hospitalization, Other)
  Sender: FDA-Public Use
  Company Number: US-ASTRAZENECA-2009UW03338

PATIENT
  Age: 23274 Day
  Sex: Male
  Weight: 82.6 kg

DRUGS (13)
  1. ACCURETIC [Concomitant]
  2. FUROSEMIDE [Concomitant]
     Route: 048
  3. GLUTROL [Concomitant]
     Route: 048
  4. POTASSIUM [Concomitant]
     Route: 048
  5. ASPIRIN [Concomitant]
     Route: 048
  6. NEXIUM [Suspect]
     Route: 048
  7. NORVASC [Concomitant]
     Route: 048
  8. ATACAND HCT [Suspect]
     Route: 048
  9. TOPROL-XL [Suspect]
     Route: 048
  10. CLONIDINE [Concomitant]
     Route: 048
  11. ISOSORB [Concomitant]
     Route: 048
  12. LOPID [Concomitant]
     Route: 048
  13. LISINOPRIL [Concomitant]
     Route: 048

REACTIONS (5)
  - INFLUENZA [None]
  - MALAISE [None]
  - BLINDNESS [None]
  - DIABETES MELLITUS [None]
  - CARDIAC FAILURE [None]
